FAERS Safety Report 4286467-0 (Version None)
Quarter: 2004Q1

REPORT INFORMATION
  Report Type: 
  Country: None (occurrence: None)
  Receive Date: 20040205
  Receipt Date: 20040205
  Transmission Date: 20041129
  Serious: Yes (Hospitalization)
  Sender: FDA-Public Use
  Company Number: None

PATIENT
  Age: 14 Year
  Sex: Female
  Weight: 74.5 kg

DRUGS (11)
  1. TACROLIMUS [Suspect]
     Indication: RENAL TRANSPLANT
     Dosage: 2 MG PO
     Route: 048
     Dates: start: 20020617
  2. NIFEREX [Concomitant]
  3. M.V.I. [Concomitant]
  4. METOPROLOL [Concomitant]
  5. PROCARDIA XL [Concomitant]
  6. VALGANCICLOVIR [Concomitant]
  7. AUGMENTIN '125' [Concomitant]
  8. HUMABID LA [Concomitant]
  9. FLUTICASONE PROPIONATE [Concomitant]
  10. CEFPROZIL [Concomitant]
  11. AMOXICILLIN [Concomitant]

REACTIONS (11)
  - BENIGN INTRACRANIAL HYPERTENSION [None]
  - BLOOD UREA INCREASED [None]
  - HAEMATOCRIT DECREASED [None]
  - HAEMOGLOBIN DECREASED [None]
  - NAUSEA [None]
  - OTITIS MEDIA [None]
  - SINUSITIS [None]
  - TRANSFERRIN DECREASED [None]
  - TRANSFERRIN SATURATION DECREASED [None]
  - URINARY TRACT INFECTION [None]
  - WEIGHT DECREASED [None]
